FAERS Safety Report 6442647-7 (Version None)
Quarter: 2009Q4

REPORT INFORMATION
  Report Type: 
  Country: None (occurrence: None)
  Receive Date: 20091117
  Receipt Date: 20091110
  Transmission Date: 20100525
  Serious: No
  Sender: FDA-Public Use
  Company Number: US-B.I. PHARMACEUTICALS,INC./RIDGEFIELD-2009-BP-13149BP

PATIENT
  Sex: Female
  Weight: 44.9 kg

DRUGS (7)
  1. SPIRIVA [Suspect]
     Indication: BRONCHITIS
     Dosage: 18 MCG
     Route: 055
     Dates: start: 20090901
  2. SPIRIVA [Suspect]
     Indication: EMPHYSEMA
  3. ASPIRIN [Concomitant]
     Indication: PROPHYLAXIS
     Dosage: 81 MG
  4. ASCORBIC ACID [Concomitant]
     Indication: PROPHYLAXIS
  5. CALCIUM [Concomitant]
     Indication: PROPHYLAXIS
  6. VITAMIN D [Concomitant]
     Indication: PROPHYLAXIS
  7. MIRALAX [Concomitant]
     Indication: CONSTIPATION

REACTIONS (3)
  - DRY MOUTH [None]
  - DYSGEUSIA [None]
  - HYPOTHYROIDISM [None]
